FAERS Safety Report 9562401 (Version 1)
Quarter: 2013Q3

REPORT INFORMATION
  Report Type: Spontaneous
  Country: US (occurrence: None)
  Receive Date: 20130926
  Receipt Date: 20130926
  Transmission Date: 20140515
  Serious: Yes (Other)
  Sender: FDA-Public Use
  Company Number: None

PATIENT
  Age: 64 Year
  Sex: Female
  Weight: 49.44 kg

DRUGS (1)
  1. PROLASTIN C [Suspect]
     Indication: ALPHA-1 ANTI-TRYPSIN DEFICIENCY
     Dosage: 3120 MG WEEKLY PERIPHERAL IV
     Route: 042
     Dates: start: 20130924

REACTIONS (2)
  - Chills [None]
  - Hot flush [None]
